FAERS Safety Report 8055143 (Version 3)
Quarter: 2013Q2

REPORT INFORMATION
  Report Type: Spontaneous
  Country: US (occurrence: US)
  Receive Date: 20110726
  Receipt Date: 20130515
  Transmission Date: 20140414
  Serious: No
  Sender: FDA-Public Use
  Company Number: US-BIOGENIDEC-2011BI026492

PATIENT
  Age: 66 Year
  Sex: Female

DRUGS (3)
  1. TYSABRI [Suspect]
     Indication: MULTIPLE SCLEROSIS
     Route: 042
     Dates: start: 20110116, end: 20110414
  2. BENADRYL [Concomitant]
     Indication: PREMEDICATION
  3. MEDICATION (NOS) [Concomitant]
     Indication: PREMEDICATION

REACTIONS (12)
  - Visual impairment [Not Recovered/Not Resolved]
  - Madarosis [Recovered/Resolved]
  - Memory impairment [Not Recovered/Not Resolved]
  - Swelling [Unknown]
  - Palpitations [Unknown]
  - Chest pain [Recovered/Resolved]
  - Rash [Recovered/Resolved]
  - Headache [Recovered/Resolved]
  - Pruritus [Unknown]
  - Alopecia [Recovered/Resolved]
  - Nausea [Unknown]
  - Vomiting [Unknown]
